FAERS Safety Report 6748618-5 (Version None)
Quarter: 2010Q2

REPORT INFORMATION
  Report Type: 
  Country: None (occurrence: None)
  Receive Date: 20100601
  Receipt Date: 20100520
  Transmission Date: 20101027
  Serious: Yes (Life-Threatening)
  Sender: FDA-Public Use
  Company Number: US-JNJFOC-20100500709

PATIENT
  Sex: Male
  Weight: 122.02 kg

DRUGS (16)
  1. TAPENTADOL [Suspect]
     Route: 048
  2. TAPENTADOL [Suspect]
     Indication: DIABETIC NEUROPATHY
     Route: 048
  3. ACTOS [Concomitant]
     Indication: DIABETES MELLITUS
     Route: 048
  4. ZOCOR [Concomitant]
     Indication: HYPERCHOLESTEROLAEMIA
     Route: 048
  5. GLIPIZIDE [Concomitant]
     Indication: DIABETES MELLITUS
     Route: 048
  6. NIACIN [Concomitant]
     Indication: HYPERCHOLESTEROLAEMIA
     Route: 048
  7. LISINOPRIL [Concomitant]
     Indication: HYPERTENSION
     Route: 048
  8. PLAVIX [Concomitant]
     Indication: CARDIAC VALVE DISEASE
     Route: 048
  9. ASPIRIN [Concomitant]
     Indication: PROPHYLAXIS
     Route: 048
  10. OMEPRAZOLE [Concomitant]
     Indication: GASTROOESOPHAGEAL REFLUX DISEASE
     Route: 048
  11. TYLENOL [Concomitant]
     Indication: DIABETIC NEUROPATHY
     Route: 048
  12. METFORMIN HCL [Concomitant]
     Indication: TYPE 2 DIABETES MELLITUS
     Route: 048
  13. BENADRYL [Concomitant]
     Indication: MULTIPLE ALLERGIES
     Route: 048
  14. MUCINEX [Concomitant]
     Indication: MULTIPLE ALLERGIES
     Route: 048
  15. MUCINEX [Concomitant]
     Route: 048
  16. DOXYCYCLINE [Concomitant]
     Indication: MULTIPLE ALLERGIES
     Route: 048

REACTIONS (4)
  - CHEST PAIN [None]
  - DIZZINESS [None]
  - DYSPNOEA [None]
  - ELECTROCARDIOGRAM CHANGE [None]
